FAERS Safety Report 5155190-2 (Version None)
Quarter: 2006Q4

REPORT INFORMATION
  Report Type: 
  Country: None (occurrence: None)
  Receive Date: 20061121
  Receipt Date: 20061114
  Transmission Date: 20070319
  Serious: Yes (Other)
  Sender: FDA-Public Use
  Company Number: US-JNJFOC-20060605329

PATIENT
  Sex: Female
  Weight: 47.63 kg

DRUGS (11)
  1. RAZADYNE [Suspect]
     Route: 048
  2. RAZADYNE [Suspect]
     Route: 048
  3. RAZADYNE [Suspect]
     Indication: DEMENTIA ALZHEIMER'S TYPE
     Route: 048
  4. ENALAPRIL MALEATE [Suspect]
     Indication: HYPERTENSION
  5. FOSAMAX [Concomitant]
     Indication: OSTEOPOROSIS
  6. EVISTA [Concomitant]
     Indication: OSTEOPOROSIS
  7. MIACALCIN [Concomitant]
  8. HYDROCHLOROTHIAZIDE [Concomitant]
  9. RELAFEN [Concomitant]
     Indication: OSTEOARTHRITIS
  10. ASPIRIN [Concomitant]
     Indication: COAGULOPATHY
  11. LEVOTHYROXINE SODIUM [Concomitant]
     Indication: HYPOTHYROIDISM

REACTIONS (6)
  - COUGH [None]
  - MULTIPLE MYELOMA [None]
  - PLEURAL FIBROSIS [None]
  - PNEUMOTHORAX [None]
  - PULMONARY MASS [None]
  - THERAPY NON-RESPONDER [None]
